FAERS Safety Report 4822972-3 (Version None)
Quarter: 2005Q4

REPORT INFORMATION
  Report Type: 
  Country: None (occurrence: None)
  Receive Date: 20051108
  Receipt Date: 20051028
  Transmission Date: 20060501
  Serious: Yes (Death, Hospitalization, Other)
  Sender: FDA-Public Use
  Company Number: IT-JNJFOC-20051001955

PATIENT
  Sex: Male

DRUGS (5)
  1. SERENASE [Suspect]
     Dosage: 15 DROPS
     Route: 048
  2. SERENASE [Suspect]
     Dosage: 20 DROPS
     Route: 048
  3. SEROQUEL [Suspect]
     Route: 048
     Dates: start: 20041026, end: 20050910
  4. SEROQUEL [Suspect]
     Route: 048
     Dates: start: 20041026, end: 20050910
  5. CITALOPRAM [Suspect]
     Indication: DEPRESSION
     Route: 048
     Dates: start: 20040201, end: 20050910

REACTIONS (13)
  - APATHY [None]
  - BRADYKINESIA [None]
  - CATHETER RELATED INFECTION [None]
  - ELECTROCARDIOGRAM QT PROLONGED [None]
  - ELECTROCARDIOGRAM REPOLARISATION ABNORMALITY [None]
  - EXTRAPYRAMIDAL DISORDER [None]
  - HYPERTONIA [None]
  - MUSCLE RIGIDITY [None]
  - SEPSIS [None]
  - SINUS TACHYCARDIA [None]
  - TREMOR [None]
  - URINARY TRACT INFECTION [None]
  - VENTRICULAR FIBRILLATION [None]
